FAERS Safety Report 11599261 (Version 3)
Quarter: 2015Q4

REPORT INFORMATION
  Report Type: Report from Study
  Country: US (occurrence: US)
  Receive Date: 20151006
  Receipt Date: 20151120
  Transmission Date: 20160304
  Serious: Yes (Hospitalization)
  Sender: FDA-Public Use
  Company Number: US-ACTELION-A-NJ2015-124888

PATIENT
  Age: 11 Year
  Sex: Female

DRUGS (6)
  1. TRACLEER [Suspect]
     Active Substance: BOSENTAN
     Indication: PULMONARY ARTERIAL HYPERTENSION
     Dosage: 62.5 MG, BID
     Route: 048
  2. COUMADIN [Concomitant]
     Active Substance: WARFARIN SODIUM
     Dosage: 2 MG, QD
  3. SILDENAFIL. [Concomitant]
     Active Substance: SILDENAFIL
     Dosage: 8 ML, Q8HOURS
  4. TYVASO [Concomitant]
     Active Substance: TREPROSTINIL
     Dosage: 0.6 MG/L, 9 INHALATIONS, QID
  5. LASIX [Concomitant]
     Active Substance: FUROSEMIDE
     Dosage: 10 MG/ML - 0.25 ML, PRN
  6. OXYGEN. [Concomitant]
     Active Substance: OXYGEN
     Dosage: 2 L, NASAL CANNULA

REACTIONS (11)
  - Pyrexia [Recovering/Resolving]
  - Dyspnoea [Recovering/Resolving]
  - Oxygen saturation decreased [Recovering/Resolving]
  - Enterovirus test positive [Recovering/Resolving]
  - Cyanosis [Recovering/Resolving]
  - Respiratory tract infection [Recovering/Resolving]
  - Streptococcus test positive [Recovering/Resolving]
  - Hypopnoea [Recovering/Resolving]
  - Pulmonary hypertensive crisis [Recovering/Resolving]
  - Hypoxia [Recovering/Resolving]
  - Cough [Recovering/Resolving]

NARRATIVE: CASE EVENT DATE: 20150918
